FAERS Safety Report 18161589 (Version 1)
Quarter: 2020Q3

REPORT INFORMATION
  Report Type: Other
  Country: TW (occurrence: TW)
  Receive Date: 20200817
  Receipt Date: 20200817
  Transmission Date: 20201103
  Serious: Yes (Other)
  Sender: FDA-Public Use
  Company Number: TW-ROCHE-2658000

PATIENT
  Age: 68 Year
  Sex: Female
  Weight: 70 kg

DRUGS (5)
  1. PACLITAXEL. [Suspect]
     Active Substance: PACLITAXEL
     Indication: BREAST CANCER
     Route: 065
     Dates: start: 2019, end: 2020
  2. CRESTOR [Concomitant]
     Active Substance: ROSUVASTATIN CALCIUM
     Route: 048
     Dates: start: 20200427
  3. HERCEPTIN [Suspect]
     Active Substance: TRASTUZUMAB
     Indication: BREAST CANCER
     Route: 058
     Dates: start: 2019
  4. FEMARA [Concomitant]
     Active Substance: LETROZOLE
     Indication: BREAST CANCER
     Route: 048
     Dates: start: 20200806
  5. REGROW (TAIWAN) [Concomitant]
     Route: 048
     Dates: start: 20200427

REACTIONS (11)
  - Muscle spasms [Unknown]
  - Hepatitis [Unknown]
  - Hypocalcaemia [Unknown]
  - Decreased appetite [Unknown]
  - Peripheral sensory neuropathy [Unknown]
  - Epistaxis [Unknown]
  - Hepatic steatosis [Unknown]
  - Pneumonia [Unknown]
  - Nausea [Unknown]
  - Hyperlipidaemia [Unknown]
  - Pruritus [Unknown]

NARRATIVE: CASE EVENT DATE: 2019
